FAERS Safety Report 8577225-7 (Version None)
Quarter: 2012Q3

REPORT INFORMATION
  Report Type: 
  Country: None (occurrence: None)
  Receive Date: 20120807
  Receipt Date: 20120731
  Transmission Date: 20120928
  Serious: No
  Sender: FDA-Public Use
  Company Number: US-ASTRAZENECA-2012SE54611

PATIENT
  Sex: Female

DRUGS (1)
  1. ARIMIDEX [Suspect]
     Route: 048
     Dates: end: 20100101

REACTIONS (6)
  - ARTHRALGIA [None]
  - ALOPECIA [None]
  - HYPERHIDROSIS [None]
  - HOT FLUSH [None]
  - PALPITATIONS [None]
  - INSOMNIA [None]
